FAERS Safety Report 12815258 (Version 2)
Quarter: 2016Q4

REPORT INFORMATION
  Report Type: Spontaneous
  Country: US (occurrence: US)
  Receive Date: 20161005
  Receipt Date: 20161006
  Transmission Date: 20170207
  Serious: No
  Sender: FDA-Public Use
  Company Number: US-BAYER-2016-186484

PATIENT
  Age: 33 Year
  Sex: Female

DRUGS (1)
  1. MIRENA [Suspect]
     Active Substance: LEVONORGESTREL
     Dosage: 20 MCG/24HR, CONT
     Route: 015
     Dates: start: 20150323, end: 20160908

REACTIONS (6)
  - Abdominal pain lower [None]
  - Weight increased [None]
  - Device issue [None]
  - Anxiety [None]
  - Uterine leiomyoma [None]
  - Dyspareunia [None]
